FAERS Safety Report 8062249-9 (Version None)
Quarter: 2012Q1

REPORT INFORMATION
  Report Type: 
  Country: None (occurrence: None)
  Receive Date: 20120118
  Receipt Date: 20111104
  Transmission Date: 20120608
  Serious: Yes (Hospitalization, Other)
  Sender: FDA-Public Use
  Company Number: BR11-292-AE

PATIENT
  Age: 72 Year
  Sex: Female
  Weight: 42.6381 kg

DRUGS (9)
  1. SPIRONOLACTONE [Suspect]
     Indication: MALIGNANT HYPERTENSION
     Dosage: 1 TABLET, QD, ORAL
     Route: 048
     Dates: start: 20110826, end: 20110901
  2. SPIRIVA [Concomitant]
  3. BUTTOX INJECTION [Concomitant]
  4. COLACE [Concomitant]
  5. LISINOPRIL [Concomitant]
  6. ALDAMATE [Concomitant]
  7. TRAZODONE HCL [Concomitant]
  8. HYDROCHLOROTHIAZIDE [Concomitant]
  9. XANOFLAX [Concomitant]

REACTIONS (5)
  - AMNESIA [None]
  - DAYDREAMING [None]
  - CONFUSIONAL STATE [None]
  - HYPOKALAEMIA [None]
  - ELECTROLYTE IMBALANCE [None]
